FAERS Safety Report 25364080 (Version 1)
Quarter: 2025Q2

REPORT INFORMATION
  Report Type: Spontaneous
  Country: CN (occurrence: CN)
  Receive Date: 20250527
  Receipt Date: 20250527
  Transmission Date: 20250716
  Serious: Yes (Hospitalization, Other)
  Sender: Kenvue
  Company Number: CN-KENVUE-20250508910

PATIENT

DRUGS (1)
  1. MOTRIN INFANTS [Suspect]
     Active Substance: IBUPROFEN
     Indication: Patent ductus arteriosus
     Dates: start: 20250404, end: 20250407

REACTIONS (2)
  - Off label use [Unknown]
  - Renal impairment [Recovered/Resolved]

NARRATIVE: CASE EVENT DATE: 20250404
